FAERS Safety Report 5812041-8 (Version None)
Quarter: 2008Q3

REPORT INFORMATION
  Report Type: 
  Country: None (occurrence: None)
  Receive Date: 20080716
  Receipt Date: 20080709
  Transmission Date: 20090109
  Serious: Yes (Other)
  Sender: FDA-Public Use
  Company Number: PHHY2008FR13737

PATIENT
  Sex: Male

DRUGS (2)
  1. TEGRETOL [Suspect]
     Indication: EPILEPSY
     Dosage: UNK
  2. DEPAKENE [Concomitant]
     Indication: EPILEPSY
     Dosage: UNK

REACTIONS (1)
  - COMPLEX REGIONAL PAIN SYNDROME [None]
